FAERS Safety Report 9052793 (Version 3)
Quarter: 2014Q1

REPORT INFORMATION
  Report Type: Spontaneous
  Country: US (occurrence: US)
  Receive Date: 20130207
  Receipt Date: 20140117
  Transmission Date: 20141002
  Serious: Yes (Death, Hospitalization, Other)
  Sender: FDA-Public Use
  Company Number: US-INCYTE CORPORATION-2013IN000163

PATIENT
  Age: 63 Year
  Sex: Male
  Weight: 94.79 kg

DRUGS (14)
  1. JAKAFI [Suspect]
     Indication: MYELOFIBROSIS
     Dosage: 15 MG, BID
     Route: 048
     Dates: start: 20120201, end: 20120619
  2. JAKAFI [Suspect]
     Indication: MYELOPROLIFERATIVE DISORDER
     Dosage: 20 MG, BID
     Route: 048
     Dates: start: 20120620
  3. PREDNISONE [Concomitant]
     Dosage: 20 MG, QD
     Route: 048
  4. GLYBURIDE [Concomitant]
     Dosage: 2.5 MG, QD
     Route: 048
  5. LEVOTHYROXINE SODIUM [Concomitant]
     Dosage: 25 MCG, QD
     Route: 048
  6. LASIX [Concomitant]
     Dosage: 20 MG, QD
     Route: 048
  7. KLOR-CON [Concomitant]
     Dosage: 10 MEQ, QD
     Route: 048
  8. CIALIS [Concomitant]
     Dosage: 5 MG, QD
     Route: 048
  9. PROCRIT [Concomitant]
     Dosage: EVERY 2 WEEKS, PER ONCOLOGY
  10. VICODIN [Concomitant]
     Indication: BONE PAIN
     Dosage: 5-500 MG, Q6H PRN
     Route: 048
  11. AMBIEN [Concomitant]
     Dosage: 5 MG, HS
     Route: 048
  12. HYDROCHLOROTHIAZIDE [Concomitant]
     Dosage: 25 MG, QD
     Route: 048
  13. UROCIT-K [Concomitant]
     Dosage: 10 MEQ, BID
     Route: 048
  14. DANAZOL [Concomitant]
     Dosage: 100 MG, QD
     Route: 048

REACTIONS (13)
  - Shock haemorrhagic [Fatal]
  - Pancreatic haemorrhage [Fatal]
  - Splenectomy [Fatal]
  - Respiratory failure [Unknown]
  - Atrial fibrillation [Recovered/Resolved]
  - Cardiomegaly [Unknown]
  - Peritoneal haemorrhage [Unknown]
  - Thrombocytopenia [Not Recovered/Not Resolved]
  - Anaemia [Not Recovered/Not Resolved]
  - Occult blood positive [Unknown]
  - Tachycardia [Unknown]
  - Epistaxis [Unknown]
  - Cough [Unknown]
